FAERS Safety Report 24252166 (Version 1)
Quarter: 2024Q3

REPORT INFORMATION
  Report Type: Spontaneous
  Country: US (occurrence: US)
  Receive Date: 20240827
  Receipt Date: 20240827
  Transmission Date: 20241016
  Serious: Yes (Other)
  Sender: ABBVIE
  Company Number: US-ABBVIE-5892888

PATIENT
  Sex: Female
  Weight: 104 kg

DRUGS (3)
  1. LEXAPRO [Suspect]
     Active Substance: ESCITALOPRAM OXALATE
     Indication: Depression
     Route: 048
     Dates: start: 20240726
  2. ABILIFY MAINTENA [Suspect]
     Active Substance: ARIPIPRAZOLE
     Indication: Bipolar disorder
     Route: 065
     Dates: start: 2023
  3. LEVOTHYROXINE SODIUM [Suspect]
     Active Substance: LEVOTHYROXINE SODIUM
     Indication: Hypothyroidism
     Route: 048

REACTIONS (8)
  - Syncope [Unknown]
  - Hypersensitivity [Unknown]
  - Affective disorder [Unknown]
  - Sinus disorder [Unknown]
  - Feeling hot [Unknown]
  - Migraine [Not Recovered/Not Resolved]
  - Fall [Unknown]
  - Product administration error [Unknown]
